FAERS Safety Report 19496568 (Version 1)
Quarter: 2021Q3

REPORT INFORMATION
  Report Type: Spontaneous
  Country: US (occurrence: US)
  Receive Date: 20210703
  Receipt Date: 20210703
  Transmission Date: 20211014
  Serious: Yes (Other)
  Sender: FDA-Public Use
  Company Number: None

PATIENT
  Age: 33 Year
  Sex: Female
  Weight: 65.25 kg

DRUGS (4)
  1. HYDROCODONE [Concomitant]
     Active Substance: HYDROCODONE
  2. TYLENOL [Concomitant]
     Active Substance: ACETAMINOPHEN
  3. PAIN RELIEVER REGULAR STRENGTH [Suspect]
     Active Substance: ACETAMINOPHEN
     Indication: BACK PAIN
     Dosage: ?          QUANTITY:100 TABLET(S);?
     Route: 048
     Dates: start: 20210606, end: 20210702
  4. FLEXERIL [Concomitant]
     Active Substance: CYCLOBENZAPRINE HYDROCHLORIDE

REACTIONS (5)
  - Product contamination microbial [None]
  - Product colour issue [None]
  - Product substitution issue [None]
  - Dyspnoea [None]
  - Body temperature increased [None]

NARRATIVE: CASE EVENT DATE: 20210608
